FAERS Safety Report 15398535 (Version 1)
Quarter: 2018Q3

REPORT INFORMATION
  Report Type: Spontaneous
  Country: US (occurrence: US)
  Receive Date: 20180913
  Receipt Date: 20180913
  Transmission Date: 20181010
  Serious: No
  Sender: FDA-Public Use
  Company Number: None

PATIENT
  Age: 63 Year
  Sex: Female
  Weight: 58.95 kg

DRUGS (5)
  1. LOSARTAN. [Concomitant]
     Active Substance: LOSARTAN
     Dates: start: 20160112
  2. ASPIRIN. [Concomitant]
     Active Substance: ASPIRIN
  3. SULFAMETHOXAZOLE [Suspect]
     Active Substance: SULFAMETHOXAZOLE
     Indication: CELLULITIS
     Route: 048
     Dates: start: 20171004, end: 20171011
  4. TRIMETHOPRIM. [Suspect]
     Active Substance: TRIMETHOPRIM
     Indication: CELLULITIS
     Route: 048
     Dates: start: 20171004, end: 20171011
  5. AMLODIPINE [Concomitant]
     Active Substance: AMLODIPINE BESYLATE
     Dates: start: 20160825

REACTIONS (1)
  - Rash [None]

NARRATIVE: CASE EVENT DATE: 20171011
